FAERS Safety Report 14259261 (Version 1)
Quarter: 2017Q4

REPORT INFORMATION
  Report Type: Spontaneous
  Country: US (occurrence: US)
  Receive Date: 20171207
  Receipt Date: 20171207
  Transmission Date: 20180321
  Serious: Yes (Death, Hospitalization, Other)
  Sender: FDA-Public Use
  Company Number: US-APOTEX-2017AP022604

PATIENT
  Age: 26 Year
  Sex: Male

DRUGS (4)
  1. PIPERACILLIN AND TAZOBACTAM [Suspect]
     Active Substance: PIPERACILLIN SODIUM\TAZOBACTAM SODIUM
     Indication: ENDOCARDITIS BACTERIAL
     Route: 065
  2. PIPERACILLIN AND TAZOBACTAM [Suspect]
     Active Substance: PIPERACILLIN SODIUM\TAZOBACTAM SODIUM
     Indication: PERICARDIAL EFFUSION
  3. VANCOMYCIN [Suspect]
     Active Substance: VANCOMYCIN
     Indication: PERICARDIAL EFFUSION
  4. VANCOMYCIN [Suspect]
     Active Substance: VANCOMYCIN
     Indication: ENDOCARDITIS BACTERIAL
     Route: 065

REACTIONS (2)
  - Endocarditis [Fatal]
  - Condition aggravated [Fatal]
